FAERS Safety Report 11996624 (Version 2)
Quarter: 2016Q1

REPORT INFORMATION
  Report Type: Spontaneous
  Country: FR (occurrence: FR)
  Receive Date: 20160203
  Receipt Date: 20160212
  Transmission Date: 20160526
  Serious: Yes (Other)
  Sender: FDA-Public Use
  Company Number: FR-SA-2016SA018424

PATIENT
  Age: 26 Year
  Sex: Female
  Weight: 45 kg

DRUGS (1)
  1. ALEMTUZUMAB [Suspect]
     Active Substance: ALEMTUZUMAB
     Route: 042
     Dates: start: 20150422

REACTIONS (4)
  - Hypovolaemic shock [Recovered/Resolved]
  - Pain [Recovered/Resolved]
  - Splenic lesion [Recovered/Resolved]
  - Splenectomy [Recovered/Resolved]

NARRATIVE: CASE EVENT DATE: 201601
